FAERS Safety Report 9109792 (Version 1)
Quarter: 2013Q1

REPORT INFORMATION
  Report Type: Spontaneous
  Country: US (occurrence: US)
  Receive Date: 20130222
  Receipt Date: 20130222
  Transmission Date: 20140127
  Serious: Yes (Other)
  Sender: FDA-Public Use
  Company Number: US-BAYER-2013-020368

PATIENT
  Age: 32 Year
  Sex: Male
  Weight: 74.83 kg

DRUGS (2)
  1. BAYER GENUINE ASPIRIN ORIGINAL STRENGTH [Suspect]
     Dosage: 2 DF, ONCE
     Route: 048
     Dates: start: 1970, end: 1970
  2. ALKA-SELTZER ORIGINAL [Suspect]
     Dosage: 1 DF, ONCE
     Route: 048
     Dates: start: 1973, end: 1973

REACTIONS (4)
  - Throat tightness [Recovered/Resolved]
  - Dyspnoea [Recovered/Resolved]
  - Urticaria [Recovered/Resolved]
  - Urticaria [Recovered/Resolved]
